FAERS Safety Report 10266185 (Version 2)
Quarter: 2014Q2

REPORT INFORMATION
  Report Type: Report from Study
  Country: US (occurrence: US)
  Receive Date: 20140627
  Receipt Date: 20140627
  Transmission Date: 20141212
  Serious: Yes (Life-Threatening, Other)
  Sender: FDA-Public Use
  Company Number: US-TEVA-490532USA

PATIENT
  Age: 84 Year
  Sex: Male
  Weight: 72.1 kg

DRUGS (3)
  1. TREANDA [Suspect]
     Dates: start: 20130422
  2. LENALIDOMIDE [Suspect]
     Dates: start: 20130422
  3. RITUXIMAB [Suspect]
     Dates: start: 20130422

REACTIONS (3)
  - Basal cell carcinoma [Recovering/Resolving]
  - Squamous cell carcinoma [Recovering/Resolving]
  - Myelodysplastic syndrome [Not Recovered/Not Resolved]
